FAERS Safety Report 8936770 (Version 2)
Quarter: 2013Q1

REPORT INFORMATION
  Report Type: Spontaneous
  Country: FR (occurrence: FR)
  Receive Date: 20121130
  Receipt Date: 20130213
  Transmission Date: 20140127
  Serious: Yes (Other)
  Sender: FDA-Public Use
  Company Number: FR-EISAI INC-E3810-06098-SPO-FR

PATIENT
  Age: 70 Year
  Sex: Male

DRUGS (5)
  1. PARIET (RABEPRAZOLE) [Suspect]
     Indication: PRODUCT USED FOR UNKNOWN INDICATION
     Dosage: UNKNOWN
     Route: 048
     Dates: start: 201202, end: 20120915
  2. KARDEGIC [Concomitant]
     Route: 048
  3. LESCOL [Concomitant]
     Indication: DYSLIPIDAEMIA
     Route: 048
  4. OLMETEC [Concomitant]
     Route: 048
     Dates: start: 201206
  5. SEVIKAR [Concomitant]
     Route: 048
     Dates: start: 201206

REACTIONS (2)
  - Tubulointerstitial nephritis [Recovered/Resolved]
  - Eosinophilia [Recovered/Resolved]
